FAERS Safety Report 7589300-4 (Version None)
Quarter: 2011Q3

REPORT INFORMATION
  Report Type: 
  Country: None (occurrence: None)
  Receive Date: 20110705
  Receipt Date: 20110629
  Transmission Date: 20111222
  Serious: Yes (Death, Other)
  Sender: FDA-Public Use
  Company Number: JP-ABBOTT-11P-087-0724658-00

PATIENT
  Sex: Male

DRUGS (10)
  1. HUMIRA [Suspect]
  2. ASCORBIC ACID/CALCIUM PANTOTHENATE [Concomitant]
     Indication: CROHN'S DISEASE
     Route: 048
     Dates: start: 20090101, end: 20110509
  3. RILMAZAFONE HYDROCHLORIDE HYDRATE [Concomitant]
     Indication: INSOMNIA
     Route: 048
     Dates: start: 20110101, end: 20110509
  4. LANSOPRAZOLE [Concomitant]
     Indication: GASTROOESOPHAGEAL REFLUX DISEASE
     Route: 048
     Dates: start: 20070101, end: 20110509
  5. RISPERIDONE [Concomitant]
     Indication: INSOMNIA
     Route: 048
     Dates: start: 20110101, end: 20110509
  6. HUMIRA [Suspect]
     Dates: start: 20110329, end: 20110329
  7. MESALAMINE [Concomitant]
     Indication: CROHN'S DISEASE
     Route: 048
     Dates: start: 20080201, end: 20110509
  8. HUMIRA [Suspect]
     Indication: CROHN'S DISEASE
     Dates: start: 20110315, end: 20110315
  9. SPORE FORMING LACTIC ACID BACTERIA [Concomitant]
     Indication: CROHN'S DISEASE
     Route: 048
     Dates: start: 20080201, end: 20110509
  10. MECOBALAMIN [Concomitant]
     Indication: PRODUCT USED FOR UNKNOWN INDICATION
     Route: 048
     Dates: start: 20080101, end: 20110509

REACTIONS (2)
  - CARDIAC FAILURE [None]
  - PANCYTOPENIA [None]
